FAERS Safety Report 6240997-0 (Version None)
Quarter: 2009Q2

REPORT INFORMATION
  Report Type: 
  Country: None (occurrence: None)
  Receive Date: 20090623
  Receipt Date: 20090619
  Transmission Date: 20091009
  Serious: Yes (Hospitalization)
  Sender: FDA-Public Use
  Company Number: B0546605A

PATIENT
  Sex: Female

DRUGS (5)
  1. FRAXIPARINE [Suspect]
     Dosage: .3ML TWICE PER DAY
     Route: 058
     Dates: start: 20080930, end: 20081001
  2. ARIXTRA [Suspect]
     Indication: THROMBOSIS PROPHYLAXIS
     Route: 058
     Dates: start: 20081001
  3. ELEVIT [Concomitant]
     Route: 048
  4. MALTOFER [Concomitant]
     Route: 048
  5. FRAXIFORTE [Concomitant]
     Dosage: .6ML PER DAY
     Route: 058
     Dates: start: 20080615, end: 20080930

REACTIONS (12)
  - ANTEPARTUM HAEMORRHAGE [None]
  - DRUG EXPOSURE DURING PREGNANCY [None]
  - DRUG INTOLERANCE [None]
  - INJECTION SITE ERYTHEMA [None]
  - INJECTION SITE IRRITATION [None]
  - INJECTION SITE PAIN [None]
  - INJECTION SITE PRURITUS [None]
  - LIVE BIRTH [None]
  - PAIN [None]
  - PREMATURE LABOUR [None]
  - RASH PAPULAR [None]
  - SKIN REACTION [None]
